FAERS Safety Report 22092233 (Version 4)
Quarter: 2024Q1

REPORT INFORMATION
  Report Type: Spontaneous
  Country: US (occurrence: US)
  Receive Date: 20230314
  Receipt Date: 20240305
  Transmission Date: 20240409
  Serious: Yes (Death, Other)
  Sender: FDA-Public Use
  Company Number: US-AMGEN-USASP2023040672

PATIENT

DRUGS (4)
  1. CARFILZOMIB [Suspect]
     Active Substance: CARFILZOMIB
     Indication: Plasma cell myeloma
     Dosage: UNK
     Route: 065
  2. CARFILZOMIB [Suspect]
     Active Substance: CARFILZOMIB
     Indication: Off label use
  3. LENALIDOMIDE [Suspect]
     Active Substance: LENALIDOMIDE
     Indication: Plasma cell myeloma
     Dosage: UNK
     Route: 065
  4. DEXAMETHASONE [Suspect]
     Active Substance: DEXAMETHASONE
     Indication: Plasma cell myeloma
     Dosage: UNK
     Route: 065

REACTIONS (22)
  - Death [Fatal]
  - Infection [Fatal]
  - Fungal infection [Fatal]
  - Plasma cell myeloma [Fatal]
  - Troponin I increased [Unknown]
  - Hypoxia [Unknown]
  - Cardiovascular disorder [Unknown]
  - Nephropathy toxic [Unknown]
  - Lung disorder [Unknown]
  - Syncope [Unknown]
  - Pericarditis [Unknown]
  - Pneumonitis [Unknown]
  - Cerebrovascular accident [Unknown]
  - Pulmonary hypertension [Unknown]
  - Neuropathy peripheral [Unknown]
  - Myocardial infarction [Unknown]
  - Atrial fibrillation [Unknown]
  - Therapy partial responder [Unknown]
  - Off label use [Unknown]
  - Sinus bradycardia [Unknown]
  - Dyspnoea [Unknown]
  - Chest pain [Unknown]
